FAERS Safety Report 8059722-6 (Version None)
Quarter: 2012Q1

REPORT INFORMATION
  Report Type: 
  Country: None (occurrence: None)
  Receive Date: 20120120
  Receipt Date: 20120117
  Transmission Date: 20120608
  Serious: Yes (Death)
  Sender: FDA-Public Use
  Company Number: PHHY2011NO105886

PATIENT
  Age: 42 Year
  Sex: Male

DRUGS (3)
  1. SABRIL [Suspect]
     Indication: EPILEPSY
     Dosage: 3000 MG, UNK
  2. PHENYTOIN [Suspect]
     Indication: EPILEPSY
     Dosage: 400 MG, UNK
  3. CARBAMAZEPINE [Suspect]
     Indication: EPILEPSY
     Dosage: 1400 MG, UNK

REACTIONS (1)
  - SUDDEN UNEXPLAINED DEATH IN EPILEPSY [None]
